FAERS Safety Report 6583512-4 (Version None)
Quarter: 2010Q1

REPORT INFORMATION
  Report Type: 
  Country: None (occurrence: None)
  Receive Date: 20100216
  Receipt Date: 20100203
  Transmission Date: 20100710
  Serious: Yes (Hospitalization)
  Sender: FDA-Public Use
  Company Number: PHHY2010JP05882

PATIENT
  Sex: Male

DRUGS (10)
  1. AMN107 AMN+CAP [Suspect]
     Indication: CHRONIC MYELOID LEUKAEMIA
     Dosage: 400 MG DAILY
     Route: 048
     Dates: start: 20090525, end: 20090809
  2. AMN107 AMN+CAP [Suspect]
     Dosage: 600 MG DAILY
     Route: 048
     Dates: start: 20090810, end: 20091025
  3. AMN107 AMN+CAP [Suspect]
     Dosage: 800 MG DAILY
     Route: 048
     Dates: start: 20091026, end: 20091107
  4. AMN107 AMN+CAP [Suspect]
     Dosage: 400 MG DAILY
     Route: 048
     Dates: start: 20091109
  5. WARFARIN SODIUM [Suspect]
     Dosage: 1.5 MG, UNK
     Route: 048
  6. NORVASC [Concomitant]
     Dosage: 7.5 MG, UNK
     Route: 048
  7. NU-LOTAN [Concomitant]
     Dosage: 2.5 MG, UNK
     Route: 048
  8. LASIX [Concomitant]
     Dosage: 10 MG, UNK
     Route: 048
  9. ZYLORIC [Concomitant]
     Dosage: 1 DF, UNK
     Route: 048
  10. BEZATOL - SLOW RELEASE [Concomitant]
     Dosage: 400 MG, UNK
     Route: 048

REACTIONS (2)
  - GASTROINTESTINAL HAEMORRHAGE [None]
  - PROTHROMBIN TIME RATIO INCREASED [None]
